FAERS Safety Report 10178395 (Version 1)
Quarter: 2014Q2

REPORT INFORMATION
  Report Type: Report from Study
  Country: CA (occurrence: CA)
  Receive Date: 20140519
  Receipt Date: 20140519
  Transmission Date: 20141212
  Serious: Yes (Other)
  Sender: FDA-Public Use
  Company Number: CA-JNJFOC-20140504543

PATIENT
  Age: 71 Year
  Sex: Male
  Weight: 72 kg

DRUGS (9)
  1. REMICADE [Suspect]
     Indication: RHEUMATOID ARTHRITIS
     Route: 042
     Dates: start: 20140506
  2. REMICADE [Suspect]
     Indication: RHEUMATOID ARTHRITIS
     Route: 042
     Dates: start: 200405
  3. COVERSYL [Concomitant]
     Route: 065
     Dates: start: 20110720
  4. CALCIUM AND VIT D [Concomitant]
     Dosage: 500 D40 500MG JAMP CALCIUM
     Route: 065
     Dates: start: 20110720
  5. CELEBREX [Concomitant]
     Route: 065
     Dates: start: 20110720
  6. ARAVA [Concomitant]
     Route: 065
     Dates: start: 20110720
  7. SYNTHROID [Concomitant]
     Dosage: 0.075 BEFORE BREAKFAST
     Route: 065
     Dates: start: 20110720
  8. NEXIUM [Concomitant]
     Dosage: 30 MINUTES BEFORE BREAKFAST
     Route: 065
     Dates: start: 20110720
  9. LYRICA [Concomitant]
     Route: 065
     Dates: start: 20110720

REACTIONS (4)
  - Blood pressure systolic decreased [Unknown]
  - Infusion related reaction [Unknown]
  - Hypoaesthesia [Unknown]
  - Asthenia [Unknown]
